FAERS Safety Report 8553845-0 (Version None)
Quarter: 2012Q3

REPORT INFORMATION
  Report Type: 
  Country: None (occurrence: None)
  Receive Date: 20120731
  Receipt Date: 20120727
  Transmission Date: 20120928
  Serious: Yes (Death, Other)
  Sender: FDA-Public Use
  Company Number: JP-ABBOTT-12P-087-0921794-00

PATIENT
  Age: 62 Year
  Sex: Female
  Weight: 44.5 kg

DRUGS (7)
  1. HUMIRA [Suspect]
     Indication: CROHN'S DISEASE
     Route: 058
     Dates: start: 20111208, end: 20111208
  2. LOPERAMIDE HCL [Concomitant]
     Dates: start: 20120218, end: 20120309
  3. POLYCARBOPHIL CALCIUM [Concomitant]
     Indication: CROHN'S DISEASE
     Route: 048
     Dates: start: 20120214, end: 20120309
  4. FAMOTIDINE [Concomitant]
     Indication: CROHN'S DISEASE
     Dates: end: 20120309
  5. HUMIRA [Suspect]
     Dates: start: 20120115, end: 20120119
  6. HUMIRA [Suspect]
     Dates: start: 20111222, end: 20111222
  7. LOPERAMIDE HCL [Concomitant]
     Indication: CROHN'S DISEASE
     Route: 048
     Dates: end: 20120217

REACTIONS (5)
  - DEVICE RELATED SEPSIS [None]
  - GENERAL PHYSICAL HEALTH DETERIORATION [None]
  - HERPES ZOSTER [None]
  - RESPIRATORY ARREST [None]
  - SURGICAL PROCEDURE REPEATED [None]
